FAERS Safety Report 8620810-4 (Version None)
Quarter: 2012Q3

REPORT INFORMATION
  Report Type: 
  Country: None (occurrence: None)
  Receive Date: 20120824
  Receipt Date: 20120813
  Transmission Date: 20120928
  Serious: Yes (Hospitalization)
  Sender: FDA-Public Use
  Company Number: US-VERTEX PHARMACEUTICAL INC.-AE-2012-010658

PATIENT
  Sex: Male

DRUGS (6)
  1. RIBAVIRIN [Interacting]
     Indication: HEPATITIS C
     Dosage: 1000 MG, UNK
     Dates: start: 20120713, end: 20120719
  2. INCIVEK [Suspect]
     Indication: HEPATITIS C
     Route: 048
     Dates: start: 20120713, end: 20120719
  3. RAMIPRIL [Interacting]
     Indication: PRODUCT USED FOR UNKNOWN INDICATION
     Dosage: 5 MG, UNK
  4. LISINOPRIL [Interacting]
     Dosage: 5 MG, UNK
  5. PEGASYS [Interacting]
     Indication: HEPATITIS C
     Dosage: 180 A?G, UNK
     Dates: start: 20120713, end: 20120719
  6. ZANTAC [Concomitant]
     Dosage: 75 MG, UNK

REACTIONS (2)
  - RENAL FAILURE ACUTE [None]
  - DRUG INTERACTION [None]
